FAERS Safety Report 7788952-3 (Version None)
Quarter: 2011Q3

REPORT INFORMATION
  Report Type: 
  Country: None (occurrence: None)
  Receive Date: 20110930
  Receipt Date: 20110919
  Transmission Date: 20111222
  Serious: Yes (Hospitalization)
  Sender: FDA-Public Use
  Company Number: US-JNJFOC-20110607058

PATIENT
  Age: 58 Year
  Sex: Male
  Weight: 72.58 kg

DRUGS (1)
  1. NEOSPORIN [Suspect]
     Indication: RASH
     Dosage: LESS THAN A DIME SIZED AMOUNT
     Route: 061
     Dates: start: 20110426, end: 20110426

REACTIONS (7)
  - FATIGUE [None]
  - IMPAIRED WORK ABILITY [None]
  - OFF LABEL USE [None]
  - PRURITUS [None]
  - LOSS OF CONSCIOUSNESS [None]
  - DIZZINESS [None]
  - FEELING HOT [None]
